FAERS Safety Report 7089905-3 (Version None)
Quarter: 2010Q4

REPORT INFORMATION
  Report Type: 
  Country: None (occurrence: None)
  Receive Date: 20101108
  Receipt Date: 20101006
  Transmission Date: 20110411
  Serious: Yes (Death, Other)
  Sender: FDA-Public Use
  Company Number: US-AMGEN-QUU435755

PATIENT

DRUGS (6)
  1. NPLATE [Suspect]
     Indication: THROMBOCYTOPENIA
     Dosage: 250 A?G, QWK
     Route: 058
     Dates: start: 20091218, end: 20100101
  2. RED BLOOD CELLS [Concomitant]
  3. PLATELETS [Concomitant]
  4. VALGANCICLOVIR HCL [Concomitant]
     Dosage: 450 MG, BID
  5. TRIMETHOPRIM + SULFAMETHOXAZOLE [Concomitant]
  6. GRANULOCYTE COLONY STIMULATING FACTOR [Concomitant]

REACTIONS (3)
  - CHRONIC LYMPHOCYTIC LEUKAEMIA [None]
  - DRUG INEFFECTIVE [None]
  - STAPHYLOCOCCAL BACTERAEMIA [None]
